FAERS Safety Report 9710835 (Version 1)
Quarter: 2013Q4

REPORT INFORMATION
  Report Type: Spontaneous
  Country: US (occurrence: US)
  Receive Date: 20131126
  Receipt Date: 20131126
  Transmission Date: 20140711
  Serious: No
  Sender: FDA-Public Use
  Company Number: US-BRISTOL-MYERS SQUIBB COMPANY-19019538

PATIENT
  Age: 75 Year
  Sex: Female

DRUGS (10)
  1. BYDUREON [Suspect]
     Dates: start: 201304
  2. METFORMIN HCL [Suspect]
  3. ASPIRIN [Concomitant]
  4. METOPROLOL [Concomitant]
  5. PRAVACHOL [Concomitant]
  6. LEVOTHYROXINE [Concomitant]
  7. LISINOPRIL [Concomitant]
  8. TESTOSTERONE [Concomitant]
  9. ESTROGEN [Concomitant]
  10. PROGESTERONE [Concomitant]
     Dosage: CREAM
     Route: 067

REACTIONS (3)
  - Injection site nodule [Unknown]
  - Injection site pain [Unknown]
  - Drug ineffective [Unknown]
